FAERS Safety Report 4836870-2 (Version None)
Quarter: 2005Q4

REPORT INFORMATION
  Report Type: 
  Country: None (occurrence: None)
  Receive Date: 20051123
  Receipt Date: 20050801
  Transmission Date: 20060501
  Serious: Yes (Hospitalization)
  Sender: FDA-Public Use
  Company Number: US-MERCK-0508USA00928

PATIENT
  Age: 63 Year
  Sex: Female
  Weight: 76 kg

DRUGS (5)
  1. VIOXX [Suspect]
     Indication: ARTHRALGIA
     Route: 048
     Dates: start: 19990101, end: 20040601
  2. COUMADIN [Concomitant]
     Indication: CARDIAC FIBRILLATION
     Route: 065
     Dates: start: 19950101, end: 20050601
  3. PACERONE [Concomitant]
     Indication: CARDIAC FIBRILLATION
     Route: 065
  4. ATENOLOL [Concomitant]
     Indication: HYPERTENSION
     Route: 065
  5. LIPITOR [Concomitant]
     Indication: BLOOD CHOLESTEROL INCREASED
     Route: 065
     Dates: start: 20000101

REACTIONS (3)
  - BREAST MASS [None]
  - MYOCARDIAL INFARCTION [None]
  - SKIN LACERATION [None]
